FAERS Safety Report 4747743-8 (Version None)
Quarter: 2005Q3

REPORT INFORMATION
  Report Type: 
  Country: None (occurrence: None)
  Receive Date: 20050817
  Receipt Date: 20050817
  Transmission Date: 20060218
  Serious: Yes (Hospitalization)
  Sender: FDA-Public Use
  Company Number: None

PATIENT
  Age: 47 Year
  Sex: Female
  Weight: 65.5 kg

DRUGS (12)
  1. PROLEUKIN [Suspect]
     Indication: METASTATIC MALIGNANT MELANOMA
     Dosage: 41 MU Q8H INTRAVENOUS
     Route: 042
     Dates: start: 20050627, end: 20050628
  2. PROLEUKIN [Suspect]
     Indication: METASTATIC MALIGNANT MELANOMA
     Dosage: 41 MU Q8H INTRAVENOUS
     Route: 042
     Dates: start: 20050530, end: 20050602
  3. LORAZEPAM [Concomitant]
  4. IBUPROFEN [Concomitant]
  5. ACETAMINOPHEN [Concomitant]
  6. DIPHENHYDRAMINE HCL [Concomitant]
  7. HYDROXYZINE [Concomitant]
  8. EPOGEN [Concomitant]
  9. POTASSIUM CHLORIDE [Concomitant]
  10. ONDANSETRON [Concomitant]
  11. HALOPERIDOL [Concomitant]
  12. PROCHLORPERAZINE [Concomitant]

REACTIONS (3)
  - CONFUSIONAL STATE [None]
  - HYPOTENSION [None]
  - RASH PRURITIC [None]
